FAERS Safety Report 13337990 (Version 1)
Quarter: 2017Q1

REPORT INFORMATION
  Report Type: Spontaneous
  Country: US (occurrence: US)
  Receive Date: 20170315
  Receipt Date: 20170315
  Transmission Date: 20170428
  Serious: Yes (Life-Threatening, Hospitalization, Other)
  Sender: FDA-Public Use
  Company Number: US-BAYER-2017-047481

PATIENT
  Sex: Female

DRUGS (1)
  1. MIRENA [Suspect]
     Active Substance: LEVONORGESTREL
     Dosage: 20 MCG/24HR, CONT
     Route: 015
     Dates: start: 201007

REACTIONS (7)
  - Anxiety [None]
  - Depression [None]
  - Hysterectomy [None]
  - Device allergy [None]
  - Neurogenic shock [None]
  - Pain [None]
  - Drug hypersensitivity [None]
